FAERS Safety Report 9228838 (Version 1)
Quarter: 2013Q2

REPORT INFORMATION
  Report Type: Spontaneous
  Country: US (occurrence: US)
  Receive Date: 20130412
  Receipt Date: 20130412
  Transmission Date: 20140414
  Serious: No
  Sender: FDA-Public Use
  Company Number: US-009507513-1304USA002306

PATIENT
  Sex: Female

DRUGS (2)
  1. AZASITE [Suspect]
     Indication: OCULAR ROSACEA
     Dosage: UNK
     Route: 047
  2. LOTEMAX [Concomitant]

REACTIONS (4)
  - Lacrimation increased [Not Recovered/Not Resolved]
  - Drug dose omission [Unknown]
  - Drug prescribing error [Unknown]
  - Product quality issue [Unknown]
